FAERS Safety Report 25075567 (Version 1)
Quarter: 2025Q1

REPORT INFORMATION
  Report Type: Spontaneous
  Country: DE (occurrence: DE)
  Receive Date: 20250313
  Receipt Date: 20250313
  Transmission Date: 20250409
  Serious: Yes (Hospitalization, Other)
  Sender: BAYER HEALTHCARE PHARMACEUTICALS INC.
  Company Number: None

PATIENT
  Age: 26 Year
  Sex: Female

DRUGS (13)
  1. ESTRADIOL [Suspect]
     Active Substance: ESTRADIOL
     Indication: Assisted reproductive technology
     Dates: start: 20250122, end: 20250123
  2. GONAL-F [Suspect]
     Active Substance: FOLLITROPIN
     Indication: Assisted reproductive technology
     Dates: start: 20250109, end: 20250113
  3. GONAL-F [Suspect]
     Active Substance: FOLLITROPIN
     Indication: Assisted reproductive technology
     Dosage: 200 IU, QD
     Dates: start: 20250114, end: 20250119
  4. GONAL-F [Suspect]
     Active Substance: FOLLITROPIN
     Indication: Assisted reproductive technology
     Dosage: 150 IU, QD
     Dates: start: 20250120, end: 20250120
  5. TRIPTORELIN ACETATE [Suspect]
     Active Substance: TRIPTORELIN ACETATE
     Indication: Assisted reproductive technology
     Dates: start: 20250120, end: 20250120
  6. PROGESTERONE [Suspect]
     Active Substance: PROGESTERONE
     Indication: Assisted reproductive technology
     Dates: start: 20250122, end: 20250123
  7. PROGESTERONE [Suspect]
     Active Substance: PROGESTERONE
     Indication: Assisted reproductive technology
     Dosage: 1200 MG, QD
     Dates: start: 20250124, end: 20250209
  8. DUPHASTON [Suspect]
     Active Substance: DYDROGESTERONE
     Indication: Assisted reproductive technology
     Dates: start: 20250122, end: 20250209
  9. ESTRADIOL\ESTRIOL [Suspect]
     Active Substance: ESTRADIOL\ESTRIOL
     Indication: Assisted reproductive technology
     Dates: start: 20250124, end: 20250209
  10. GONADOTROPHIN, CHORIONIC [Suspect]
     Active Substance: GONADOTROPHIN, CHORIONIC
     Indication: Assisted reproductive technology
     Dates: start: 20250122, end: 20250122
  11. GONADOTROPHIN, CHORIONIC [Suspect]
     Active Substance: GONADOTROPHIN, CHORIONIC
     Indication: Assisted reproductive technology
     Dosage: 750 IU, QD
     Dates: start: 20250127, end: 20250127
  12. ASPIRIN [Suspect]
     Active Substance: ASPIRIN
     Indication: Assisted reproductive technology
     Dates: start: 20250124, end: 20250209
  13. GANIRELIX ACETATE [Suspect]
     Active Substance: GANIRELIX ACETATE
     Indication: Assisted reproductive technology
     Dates: start: 20250114, end: 20250119

REACTIONS (6)
  - Ovarian hyperstimulation syndrome [Recovered/Resolved]
  - Abdominal wall disorder [Recovered/Resolved]
  - Abdominal tenderness [Recovered/Resolved]
  - Nausea [Recovered/Resolved]
  - Vomiting [Recovered/Resolved]
  - Dyspnoea [Recovered/Resolved]

NARRATIVE: CASE EVENT DATE: 20250129
